FAERS Safety Report 16831728 (Version 1)
Quarter: 2019Q3

REPORT INFORMATION
  Report Type: Spontaneous
  Country: DE (occurrence: DE)
  Receive Date: 20190920
  Receipt Date: 20190920
  Transmission Date: 20191005
  Serious: Yes (Other)
  Sender: FDA-Public Use
  Company Number: DE-TEVA-2019-DE-1068253

PATIENT
  Age: 50 Year
  Sex: Female
  Weight: 57 kg

DRUGS (3)
  1. METRONIDAZOL [Concomitant]
     Active Substance: METRONIDAZOLE
     Dosage: INFUSION 2X DAILY 500 MG EACH
     Route: 042
     Dates: start: 20190501, end: 20190607
  2. CEFUROXIM [Concomitant]
     Active Substance: CEFUROXIME
     Dosage: INFUSION 2X DAILY 500 MG EACH
     Route: 042
     Dates: start: 20190501, end: 20190607
  3. CIPROFLOXACIN-RATIOPHARM 500 MG [Suspect]
     Active Substance: CIPROFLOXACIN
     Dosage: 2 X DAILY 500 MG EACH (ORAL (SUSPENSION, TABLET))
     Route: 048
     Dates: start: 20190509, end: 20190516

REACTIONS (14)
  - Middle insomnia [Recovered/Resolved]
  - Headache [Recovered/Resolved]
  - Peripheral swelling [Recovered/Resolved]
  - Neck pain [Recovered/Resolved]
  - Tendon pain [Not Recovered/Not Resolved]
  - Pain in extremity [Recovered/Resolved]
  - Neuralgia [Recovered/Resolved]
  - Abdominal pain [Recovered/Resolved]
  - Skin pressure mark [Recovered/Resolved]
  - Arthralgia [Recovered/Resolved]
  - Impaired quality of life [Recovered/Resolved]
  - Malaise [Recovered/Resolved]
  - Myalgia [Recovered/Resolved]
  - Pain [Recovered/Resolved]

NARRATIVE: CASE EVENT DATE: 20190518
